FAERS Safety Report 5289352-0 (Version None)
Quarter: 2007Q2

REPORT INFORMATION
  Report Type: 
  Country: None (occurrence: None)
  Receive Date: 20070406
  Receipt Date: 20070327
  Transmission Date: 20071010
  Serious: Yes (Other)
  Sender: FDA-Public Use
  Company Number: PHFR2007GB00739

PATIENT
  Age: 26 Year
  Sex: Female
  Weight: 64 kg

DRUGS (7)
  1. DESFERAL [Suspect]
     Indication: THALASSAEMIA
     Route: 065
  2. DESFERAL [Suspect]
     Dosage: 4 G, QD
     Dates: start: 20061001
  3. ASCORBIC ACID [Concomitant]
     Dosage: 200 MG, QD
     Route: 048
  4. PREMPAK C [Concomitant]
     Route: 065
  5. LEVOTHYROXINE SODIUM [Concomitant]
     Dosage: 50 UG, QD
     Route: 048
  6. PENICILLIN V [Concomitant]
     Dosage: 250 MG, BID
     Route: 048
  7. FOLIC ACID [Concomitant]
     Dosage: 50 MG, QD
     Route: 048

REACTIONS (4)
  - EJECTION FRACTION DECREASED [None]
  - INVESTIGATION [None]
  - NUCLEAR MAGNETIC RESONANCE IMAGING ABNORMAL [None]
  - TREATMENT NONCOMPLIANCE [None]
